FAERS Safety Report 17446533 (Version 2)
Quarter: 2020Q2

REPORT INFORMATION
  Report Type: Report from Study
  Country: US (occurrence: US)
  Receive Date: 20200221
  Receipt Date: 20200402
  Transmission Date: 20200713
  Serious: Yes (Hospitalization)
  Sender: FDA-Public Use
  Company Number: US-ACTELION-A-NJ2019-199380

PATIENT
  Age: 65 Year
  Sex: Female
  Weight: 73.02 kg

DRUGS (3)
  1. LETAIRIS [Concomitant]
     Active Substance: AMBRISENTAN
  2. REVATIO [Concomitant]
     Active Substance: SILDENAFIL CITRATE
  3. UPTRAVI [Suspect]
     Active Substance: SELEXIPAG
     Indication: PULMONARY HYPERTENSION
     Dosage: 600 MCG, BID
     Route: 048

REACTIONS (3)
  - Pericardial effusion [Recovering/Resolving]
  - Haemoglobin decreased [Unknown]
  - Atrial flutter [Recovering/Resolving]

NARRATIVE: CASE EVENT DATE: 202002
